FAERS Safety Report 16939841 (Version 4)
Quarter: 2020Q2

REPORT INFORMATION
  Report Type: Spontaneous
  Country: ES (occurrence: ES)
  Receive Date: 20191021
  Receipt Date: 20200603
  Transmission Date: 20200713
  Serious: Yes (Hospitalization)
  Sender: FDA-Public Use
  Company Number: ES-TEVA-2019-ES-1123416

PATIENT
  Age: 40 Year
  Sex: Male

DRUGS (5)
  1. FLUCONAZOL (2432A) [Concomitant]
     Active Substance: FLUCONAZOLE
     Route: 048
     Dates: start: 20190208, end: 20190225
  2. INMUNOGLOBULINA CONEJO ANTI-LINFOCITOS T HUMANOS (2639A) [Concomitant]
     Active Substance: LAPINE T-LYMPHOCYTE IMMUNE GLOBULIN
     Indication: PROPHYLAXIS AGAINST TRANSPLANT REJECTION
     Route: 042
     Dates: start: 20190204, end: 20190206
  3. CEFTRIAXONA (501A) [Concomitant]
     Active Substance: CEFTRIAXONE
     Indication: PYREXIA
     Dosage: 2 GRAM DAILY;
     Route: 042
     Dates: start: 20190206, end: 20190211
  4. LEVOFLOXACINO (2791A) [Suspect]
     Active Substance: LEVOFLOXACIN
     Indication: FEBRILE NEUTROPENIA
     Dosage: 500 MILLIGRAM DAILY;
     Route: 048
     Dates: start: 20190211, end: 20190222
  5. ACICLOVIR (201A) [Concomitant]
     Active Substance: ACYCLOVIR
     Route: 048
     Dates: start: 20190203, end: 20190208

REACTIONS (1)
  - Neuralgic amyotrophy [Recovered/Resolved]

NARRATIVE: CASE EVENT DATE: 20190217
